FAERS Safety Report 8059814-1 (Version None)
Quarter: 2012Q1

REPORT INFORMATION
  Report Type: 
  Country: None (occurrence: None)
  Receive Date: 20120120
  Receipt Date: 20120110
  Transmission Date: 20120608
  Serious: Yes (Death, Hospitalization, Other)
  Sender: FDA-Public Use
  Company Number: US-ABBOTT-11P-163-0882358-00

PATIENT
  Sex: Female
  Weight: 73 kg

DRUGS (1)
  1. HUMIRA [Suspect]
     Indication: PSORIASIS
     Dates: end: 20110901

REACTIONS (9)
  - SKIN INFECTION [None]
  - PNEUMONIA [None]
  - SEPSIS [None]
  - RESPIRATORY FAILURE [None]
  - PATHOGEN RESISTANCE [None]
  - FUNGAEMIA [None]
  - BACTERAEMIA [None]
  - ACUTE RESPIRATORY DISTRESS SYNDROME [None]
  - ASTHENIA [None]
